FAERS Safety Report 16864631 (Version 2)
Quarter: 2023Q4

REPORT INFORMATION
  Report Type: Spontaneous
  Country: US (occurrence: US)
  Receive Date: 20190928
  Receipt Date: 20231002
  Transmission Date: 20240110
  Serious: No
  Sender: FDA-Public Use
  Company Number: US-ALEXION-96388

PATIENT
  Sex: Female

DRUGS (3)
  1. SOLIRIS [Suspect]
     Active Substance: ECULIZUMAB
     Indication: Atypical haemolytic uraemic syndrome
     Dosage: UNK
     Route: 065
     Dates: start: 2016
  2. CYTOXAN [Concomitant]
     Active Substance: CYCLOPHOSPHAMIDE
     Indication: Product used for unknown indication
     Route: 065
  3. SOLU-MEDROL [Concomitant]
     Active Substance: METHYLPREDNISOLONE SODIUM SUCCINATE
     Indication: Product used for unknown indication
     Route: 065

REACTIONS (1)
  - Drug ineffective [Unknown]
